FAERS Safety Report 15548896 (Version 1)
Quarter: 2018Q4

REPORT INFORMATION
  Report Type: Spontaneous
  Country: SE (occurrence: SE)
  Receive Date: 20181025
  Receipt Date: 20181025
  Transmission Date: 20190205
  Serious: Yes (Other)
  Sender: FDA-Public Use
  Company Number: SE-TEVA-2018-SE-968286

PATIENT
  Age: 17 Year
  Sex: Female
  Weight: 45 kg

DRUGS (26)
  1. DIAMOX SEQUELS [Suspect]
     Active Substance: ACETAZOLAMIDE
     Indication: GLAUCOMA
     Dosage: 750 MILLIGRAM DAILY;
     Route: 065
     Dates: start: 20171128, end: 20171206
  2. KALIUMKLORID [Concomitant]
     Route: 065
     Dates: start: 20171225, end: 20180111
  3. GLAUDIN [Concomitant]
     Route: 065
  4. HUMIRA [Concomitant]
     Active Substance: ADALIMUMAB
     Route: 065
     Dates: start: 20171109
  5. PREDNISOLONE. [Suspect]
     Active Substance: PREDNISOLONE
     Dosage: 15 MILLIGRAM DAILY;
     Route: 065
     Dates: start: 20180122, end: 20180207
  6. DIAMOX SEQUELS [Suspect]
     Active Substance: ACETAZOLAMIDE
     Dosage: 500 MILLIGRAM DAILY;
     Route: 065
     Dates: start: 20171113, end: 20171127
  7. PREDNISOLONE. [Suspect]
     Active Substance: PREDNISOLONE
     Dosage: 30 MILLIGRAM DAILY;
     Route: 065
     Dates: start: 20171003, end: 20171030
  8. PREDNISOLONE. [Suspect]
     Active Substance: PREDNISOLONE
     Dosage: 15 MILLIGRAM DAILY;
     Route: 065
     Dates: start: 20171212, end: 20171219
  9. PREDNISOLONE. [Suspect]
     Active Substance: PREDNISOLONE
     Dosage: 15 MILLIGRAM DAILY;
     Route: 065
     Dates: start: 20171220, end: 20180121
  10. GANFORT [Concomitant]
     Active Substance: BIMATOPROST\TIMOLOL
     Route: 065
  11. PILOKARPIN [Concomitant]
     Active Substance: PILOCARPINE
     Route: 065
     Dates: start: 20171201
  12. DIAMOX SEQUELS [Suspect]
     Active Substance: ACETAZOLAMIDE
     Dosage: 1000 MILLIGRAM DAILY;
     Route: 065
     Dates: start: 20171207, end: 20180111
  13. LANSOPRAZOL [Concomitant]
     Active Substance: LANSOPRAZOLE
     Route: 065
     Dates: start: 20171101, end: 20180423
  14. PREDNISOLONE. [Suspect]
     Active Substance: PREDNISOLONE
     Dosage: 10 MILLIGRAM DAILY;
     Route: 065
     Dates: start: 20180208, end: 20180422
  15. DIAMOX SEQUELS [Suspect]
     Active Substance: ACETAZOLAMIDE
     Dosage: 500 MILLIGRAM DAILY;
     Route: 065
     Dates: start: 20180112, end: 20180112
  16. OPNOL [Concomitant]
     Route: 065
  17. TIMOSAN [Concomitant]
     Active Substance: TIMOLOL MALEATE
     Route: 065
  18. PREDNISOLONE. [Suspect]
     Active Substance: PREDNISOLONE
     Dosage: 20 MILLIGRAM DAILY;
     Route: 065
     Dates: start: 20171128, end: 20171211
  19. DIAMOX SEQUELS [Suspect]
     Active Substance: ACETAZOLAMIDE
     Dosage: 250 MILLIGRAM DAILY;
     Route: 065
     Dates: start: 20170501, end: 20171112
  20. PREDNISOLONE. [Suspect]
     Active Substance: PREDNISOLONE
     Indication: UVEITIS
     Dosage: 7.5 MG EVERY OTHER DAY
     Route: 065
     Dates: start: 20180517, end: 20180518
  21. PREDNISOLONE. [Suspect]
     Active Substance: PREDNISOLONE
     Dosage: 5 MG EVERY OTHER DAY
     Route: 065
     Dates: start: 20180519
  22. PREDNISOLONE. [Suspect]
     Active Substance: PREDNISOLONE
     Dosage: 30 MILLIGRAM DAILY;
     Route: 065
     Dates: start: 20171103, end: 20171127
  23. PREDNISOLONE. [Suspect]
     Active Substance: PREDNISOLONE
     Indication: EYE INFLAMMATION
     Dosage: 7.5 MILLIGRAM DAILY;
     Route: 065
     Dates: start: 20180423, end: 20180516
  24. PREDNISOLONE. [Suspect]
     Active Substance: PREDNISOLONE
     Dosage: 60 MILLIGRAM DAILY;
     Route: 065
     Dates: start: 20171101, end: 20171102
  25. TRUSOPT [Concomitant]
     Active Substance: DORZOLAMIDE HYDROCHLORIDE
     Route: 065
  26. OFTAGEL [Concomitant]
     Active Substance: CARBOMER
     Route: 065

REACTIONS (1)
  - Depression [Recovered/Resolved]

NARRATIVE: CASE EVENT DATE: 2017
